FAERS Safety Report 15826186 (Version 1)
Quarter: 2019Q1

REPORT INFORMATION
  Report Type: Spontaneous
  Country: JP (occurrence: JP)
  Receive Date: 20190115
  Receipt Date: 20190115
  Transmission Date: 20190417
  Serious: Yes (Other)
  Sender: FDA-Public Use
  Company Number: JP-SA-2018SA150357

PATIENT
  Age: 18 Year
  Sex: Female

DRUGS (3)
  1. TALION [BEPOTASTINE BESILATE] [Suspect]
     Active Substance: BEPOTASTINE BESILATE
     Indication: DERMATITIS ATOPIC
     Dosage: 10 MG, BID
     Route: 048
     Dates: start: 2017, end: 201803
  2. ATARAX [Suspect]
     Active Substance: HYDROXYZINE HYDROCHLORIDE
     Indication: DERMATITIS ATOPIC
     Dosage: 10 MG, QD
     Route: 048
     Dates: start: 2017, end: 201803
  3. FEXOFENADINA SANIK 60MG [Suspect]
     Active Substance: FEXOFENADINE HYDROCHLORIDE
     Indication: ALOPECIA AREATA
     Dosage: 60 MG, BID
     Route: 048
     Dates: start: 20180310, end: 20180601

REACTIONS (3)
  - Alopecia areata [Not Recovered/Not Resolved]
  - Condition aggravated [Not Recovered/Not Resolved]
  - Product use in unapproved indication [Unknown]

NARRATIVE: CASE EVENT DATE: 201803
